FAERS Safety Report 26042693 (Version 1)
Quarter: 2025Q4

REPORT INFORMATION
  Report Type: Spontaneous
  Country: US (occurrence: US)
  Receive Date: 20251113
  Receipt Date: 20251113
  Transmission Date: 20260117
  Serious: No
  Sender: ABBVIE
  Company Number: US-ABBVIE-6546662

PATIENT
  Age: 82 Year
  Sex: Male

DRUGS (1)
  1. FOSCARBIDOPA\FOSLEVODOPA [Suspect]
     Active Substance: FOSCARBIDOPA\FOSLEVODOPA
     Indication: Product used for unknown indication
     Dosage: BASE: 0.47 ML/H?HIGH: 0.49 ML/H?NIGHTTIME: 0.18 ML/H
     Route: 058
     Dates: start: 202401

REACTIONS (4)
  - Catheter site nodule [Unknown]
  - Catheter site pain [Recovered/Resolved]
  - Catheter site erythema [Unknown]
  - Catheter site induration [Unknown]

NARRATIVE: CASE EVENT DATE: 20251001
